FAERS Safety Report 16673623 (Version 2)
Quarter: 2020Q3

REPORT INFORMATION
  Report Type: Spontaneous
  Country: CA (occurrence: CA)
  Receive Date: 20190806
  Receipt Date: 20200710
  Transmission Date: 20201102
  Serious: Yes (Life-Threatening, Disabling)
  Sender: FDA-Public Use
  Company Number: CA-PFIZER INC-2019336766

PATIENT
  Age: 56 Year
  Sex: Female
  Weight: 49 kg

DRUGS (1)
  1. ARTHROTEC [Suspect]
     Active Substance: DICLOFENAC SODIUM\MISOPROSTOL
     Indication: LIGAMENT RUPTURE
     Dosage: 1 DF, 2X/DAY
     Route: 065

REACTIONS (5)
  - Product use in unapproved indication [Unknown]
  - Hypotension [Recovered/Resolved]
  - Off label use [Unknown]
  - Raynaud^s phenomenon [Recovered/Resolved]
  - Hypertension [Recovered/Resolved]
